FAERS Safety Report 26091691 (Version 1)
Quarter: 2025Q4

REPORT INFORMATION
  Report Type: Spontaneous
  Country: US (occurrence: US)
  Receive Date: 20251126
  Receipt Date: 20251126
  Transmission Date: 20260117
  Serious: No
  Sender: AUROBINDO
  Company Number: US-AUROBINDO-AUR-APL-2025-047431

PATIENT
  Age: 70 Year
  Sex: Female
  Weight: 70.76 kg

DRUGS (1)
  1. DICLOFENAC SODIUM [Suspect]
     Active Substance: DICLOFENAC SODIUM
     Indication: Pain
     Dosage: UNK
     Route: 065

REACTIONS (4)
  - Pain [Unknown]
  - Product dose omission issue [Unknown]
  - Device malfunction [Unknown]
  - Device breakage [Unknown]
